FAERS Safety Report 18167427 (Version 1)
Quarter: 2020Q3

REPORT INFORMATION
  Report Type: Spontaneous
  Country: US (occurrence: US)
  Receive Date: 20200818
  Receipt Date: 20200818
  Transmission Date: 20201103
  Serious: No
  Sender: FDA-Public Use
  Company Number: None

PATIENT
  Age: 60 Year
  Sex: Male
  Weight: 126 kg

DRUGS (15)
  1. ZOFRAN 4 MG Q6HR PRN [Concomitant]
     Dates: start: 20200812
  2. REMDESIVIR. [Suspect]
     Active Substance: REMDESIVIR
     Indication: COVID-19
     Route: 041
     Dates: start: 20200817, end: 20200817
  3. TESSALON PERLES 100 MG TID PRN [Concomitant]
     Dates: start: 20200811
  4. LOMOTIL 1 Q 6HR PRN [Concomitant]
     Dates: start: 20200812
  5. REMDESIVIR. [Suspect]
     Active Substance: REMDESIVIR
     Indication: COVID-19
     Route: 041
     Dates: start: 20200813, end: 20200816
  6. DECADRON 6 MG DAILY [Concomitant]
     Dates: start: 20200812
  7. CONVALESENT PLASMA [Concomitant]
     Dates: start: 20200813, end: 20200813
  8. MULTIVITAMIN DAILY [Concomitant]
     Dates: start: 20200812
  9. GLARGINE 10 UNITS SQ DAILY [Concomitant]
     Dates: start: 20200813
  10. MUCINEX 600 MG BID [Concomitant]
     Dates: start: 20200817
  11. HYDROCHLOROTHIAZIDE 25 MG DAILY [Concomitant]
     Dates: start: 20200812
  12. ATORVASTATIN 20 MG DAILY [Concomitant]
     Dates: start: 20200812
  13. LOVENOX 40 MG SQ DAILY [Concomitant]
     Dates: start: 20200811
  14. MIRALAX 17 GRAM DAILY PRN [Concomitant]
     Dates: start: 20200811
  15. TYLENOL 1000 MG Q 6HR PRN [Concomitant]
     Dates: start: 20200811

REACTIONS (1)
  - Blood bilirubin increased [None]

NARRATIVE: CASE EVENT DATE: 20200814
